FAERS Safety Report 5621262-9 (Version None)
Quarter: 2008Q1

REPORT INFORMATION
  Report Type: 
  Country: None (occurrence: None)
  Receive Date: 20080114
  Receipt Date: 20070507
  Transmission Date: 20080703
  Serious: Yes (Other)
  Sender: FDA-Public Use
  Company Number: A03200702928

PATIENT
  Age: 55 Year
  Sex: Male

DRUGS (4)
  1. PLAVIX [Suspect]
     Dosage: 75 MG QD - ORAL
     Route: 048
  2. PLAVIX [Suspect]
     Dosage: 150 MG QD - ORAL
     Route: 048
  3. ASPIRIN [Suspect]
  4. ASPIRIN [Suspect]
     Dosage: 650 MG QD

REACTIONS (3)
  - DRUG RESISTANCE [None]
  - OVERDOSE [None]
  - THROMBOSIS IN DEVICE [None]
